FAERS Safety Report 25248589 (Version 1)
Quarter: 2025Q2

REPORT INFORMATION
  Report Type: Spontaneous
  Country: US (occurrence: US)
  Receive Date: 20250429
  Receipt Date: 20250429
  Transmission Date: 20250716
  Serious: No
  Sender: BAXTER
  Company Number: US-BAXTER-2025BAX014526

PATIENT
  Sex: Female

DRUGS (2)
  1. LACTATED RINGERS SOLUTION [Suspect]
     Active Substance: CALCIUM CHLORIDE\POTASSIUM CHLORIDE\SODIUM CHLORIDE\SODIUM LACTATE
     Route: 042
     Dates: start: 20250408
  2. PITOCIN [Suspect]
     Active Substance: OXYTOCIN
     Indication: Haemorrhage
     Route: 042
     Dates: start: 20250408

REACTIONS (2)
  - Haemorrhage [Unknown]
  - Maternal exposure during delivery [Unknown]

NARRATIVE: CASE EVENT DATE: 20250408
